FAERS Safety Report 8411730-9 (Version None)
Quarter: 2012Q2

REPORT INFORMATION
  Report Type: 
  Country: None (occurrence: None)
  Receive Date: 20120605
  Receipt Date: 20120514
  Transmission Date: 20120825
  Serious: No
  Sender: FDA-Public Use
  Company Number: US-AMGEN-USASP2012030364

PATIENT
  Age: 27 Year
  Sex: Female

DRUGS (1)
  1. ENBREL [Suspect]
     Indication: ANKYLOSING SPONDYLITIS
     Dosage: 50 MG, QWK
     Dates: start: 20120304

REACTIONS (6)
  - PAIN IN EXTREMITY [None]
  - ASTHENIA [None]
  - PAIN [None]
  - NAUSEA [None]
  - EYE IRRITATION [None]
  - DECREASED APPETITE [None]
